FAERS Safety Report 9891634 (Version 15)
Quarter: 2015Q2

REPORT INFORMATION
  Report Type: Report from Study
  Country: CA (occurrence: CA)
  Receive Date: 20140212
  Receipt Date: 20150605
  Transmission Date: 20150821
  Serious: Yes (Hospitalization, Other)
  Sender: FDA-Public Use
  Company Number: PHHY2013CA129562

PATIENT
  Age: 78 Year
  Sex: Male

DRUGS (2)
  1. SANDOSTATIN LAR DEPOT [Suspect]
     Active Substance: OCTREOTIDE ACETATE
     Indication: NEUROENDOCRINE TUMOUR
     Dosage: 30 MG, EVERY 4 WEEKS
     Route: 030
     Dates: start: 20130621
  2. SALICYLATE [Concomitant]
     Active Substance: SALICYLIC ACID
     Indication: PRODUCT USED FOR UNKNOWN INDICATION
     Route: 065

REACTIONS (32)
  - Cardiac function test abnormal [Unknown]
  - Polymyalgia rheumatica [Unknown]
  - Abasia [Unknown]
  - Decreased appetite [Recovering/Resolving]
  - Influenza [Unknown]
  - Thrombosis [Unknown]
  - Nasopharyngitis [Unknown]
  - Hyperglycaemia [Not Recovered/Not Resolved]
  - Ear disorder [Unknown]
  - Skin disorder [Unknown]
  - Hypokinesia [Unknown]
  - Tachycardia [Recovering/Resolving]
  - Blood pressure systolic increased [Unknown]
  - Rash generalised [Recovering/Resolving]
  - Gait disturbance [Unknown]
  - Fatigue [Unknown]
  - Pain [Unknown]
  - Pruritus [Unknown]
  - Feeding disorder [Unknown]
  - Pneumonia [Unknown]
  - Dehydration [Unknown]
  - Palpitations [Unknown]
  - Oedema peripheral [Unknown]
  - Hypotension [Unknown]
  - Otorrhoea [Unknown]
  - Ear pain [Unknown]
  - Respiratory tract congestion [Unknown]
  - Asthenia [Unknown]
  - Infection [Unknown]
  - Psoriasis [Unknown]
  - Erythema [Unknown]
  - Skin irritation [Unknown]

NARRATIVE: CASE EVENT DATE: 20131112
